FAERS Safety Report 7986017-9 (Version None)
Quarter: 2011Q4

REPORT INFORMATION
  Report Type: 
  Country: None (occurrence: None)
  Receive Date: 20111216
  Receipt Date: 20111206
  Transmission Date: 20120403
  Serious: Yes (Hospitalization)
  Sender: FDA-Public Use
  Company Number: US-MPIJNJ-2011-06211

PATIENT
  Age: 71 Year
  Sex: Female
  Weight: 85.05 kg

DRUGS (7)
  1. ATORVASTATIN [Concomitant]
     Indication: PRODUCT USED FOR UNKNOWN INDICATION
  2. GABAPENTIN [Concomitant]
     Indication: PRODUCT USED FOR UNKNOWN INDICATION
  3. DEXAMETHASONE [Suspect]
     Indication: MULTIPLE MYELOMA
     Dosage: 20 MG, CYCLIC
     Route: 048
     Dates: start: 20111111, end: 20111122
  4. VELCADE [Suspect]
     Indication: MULTIPLE MYELOMA
     Dosage: 1.3 MG/M2, CYCLIC
     Route: 040
     Dates: start: 20111111, end: 20111121
  5. ASPIRIN [Concomitant]
     Indication: PRODUCT USED FOR UNKNOWN INDICATION
     Dosage: 325 MG, QD
     Route: 048
     Dates: start: 20111111
  6. LENALIDOMIDE [Suspect]
     Indication: MULTIPLE MYELOMA
     Dosage: 25 MG, CYCLIC
     Route: 048
     Dates: start: 20111111, end: 20111124
  7. PERCOCET [Concomitant]
     Indication: PRODUCT USED FOR UNKNOWN INDICATION

REACTIONS (5)
  - SYNCOPE [None]
  - ATRIAL FIBRILLATION [None]
  - MUSCULAR WEAKNESS [None]
  - ANAEMIA [None]
  - FALL [None]
